FAERS Safety Report 20054855 (Version 1)
Quarter: 2021Q4

REPORT INFORMATION
  Report Type: Spontaneous
  Country: US (occurrence: US)
  Receive Date: 20211110
  Receipt Date: 20211110
  Transmission Date: 20220304
  Serious: Yes (Other)
  Sender: FDA-Public Use
  Company Number: US-ELI_LILLY_AND_COMPANY-US202111000837

PATIENT

DRUGS (1)
  1. RETEVMO [Suspect]
     Active Substance: SELPERCATINIB
     Indication: Product used for unknown indication
     Dosage: 40 MG, UNKNOWN
     Route: 065

REACTIONS (2)
  - Brain neoplasm [Unknown]
  - Bone cancer [Unknown]
